FAERS Safety Report 20551484 (Version 1)
Quarter: 2022Q1

REPORT INFORMATION
  Report Type: Report from Study
  Country: CA (occurrence: CA)
  Receive Date: 20220304
  Receipt Date: 20220304
  Transmission Date: 20220423
  Serious: Yes (Other)
  Sender: FDA-Public Use
  Company Number: CA-AMGEN-CANSL2021054821

PATIENT
  Age: 61 Year
  Sex: Female

DRUGS (1)
  1. ENBREL [Suspect]
     Active Substance: ETANERCEPT
     Indication: Rheumatoid arthritis
     Dosage: UNK
     Route: 065
     Dates: start: 2019

REACTIONS (10)
  - Nephrolithiasis [Unknown]
  - Congenital cystic kidney disease [Unknown]
  - Spinal osteoarthritis [Unknown]
  - Tympanic membrane disorder [Unknown]
  - Dry eye [Unknown]
  - Sinusitis [Unknown]
  - Back pain [Unknown]
  - Joint dislocation [Not Recovered/Not Resolved]
  - Nodule [Unknown]
  - Arthralgia [Unknown]

NARRATIVE: CASE EVENT DATE: 20210101
